FAERS Safety Report 14076944 (Version 6)
Quarter: 2018Q3

REPORT INFORMATION
  Report Type: Report from Study
  Country: None (occurrence: NL)
  Receive Date: 20171011
  Receipt Date: 20180730
  Transmission Date: 20181010
  Serious: Yes (Other)
  Sender: FDA-Public Use
  Company Number: NL-ABBVIE-17P-114-1865959-00

PATIENT
  Age: 76 Year
  Sex: Female
  Weight: 71 kg

DRUGS (3)
  1. DUODOPA [Suspect]
     Active Substance: CARBIDOPA\LEVODOPA
     Dosage: MD 8, CD 2.9, ED 1
     Route: 050
     Dates: start: 2017, end: 2017
  2. DUODOPA [Suspect]
     Active Substance: CARBIDOPA\LEVODOPA
     Indication: PARKINSON^S DISEASE
     Dosage: MD 9, CD 2.9, ED 1
     Route: 050
     Dates: start: 20170127, end: 2017
  3. DUODOPA [Suspect]
     Active Substance: CARBIDOPA\LEVODOPA
     Dosage: MD 10, CD 3.1, ED 1.0
     Route: 050
     Dates: start: 2017

REACTIONS (49)
  - Stoma site hypersensitivity [Not Recovered/Not Resolved]
  - Stoma site odour [Unknown]
  - Blood pressure decreased [Not Recovered/Not Resolved]
  - Upper limb fracture [Not Recovered/Not Resolved]
  - Fall [Not Recovered/Not Resolved]
  - Gastrointestinal pain [Recovering/Resolving]
  - Mobility decreased [Not Recovered/Not Resolved]
  - Wound [Unknown]
  - Gait disturbance [Not Recovered/Not Resolved]
  - Stoma site inflammation [Recovered/Resolved]
  - Stoma site reaction [Recovered/Resolved]
  - Pain [Recovering/Resolving]
  - Stoma site erythema [Not Recovered/Not Resolved]
  - Stoma site abscess [Not Recovered/Not Resolved]
  - Mental impairment [Not Recovered/Not Resolved]
  - Stoma site erythema [Recovered/Resolved]
  - Middle insomnia [Not Recovered/Not Resolved]
  - Orthostatic hypotension [Not Recovered/Not Resolved]
  - Muscle rigidity [Not Recovered/Not Resolved]
  - Wound abscess [Recovering/Resolving]
  - Fatigue [Not Recovered/Not Resolved]
  - Stoma site induration [Not Recovered/Not Resolved]
  - Stoma site pain [Not Recovered/Not Resolved]
  - Dyskinesia [Recovering/Resolving]
  - Hypokinesia [Not Recovered/Not Resolved]
  - Adhesion [Not Recovered/Not Resolved]
  - Abnormal dreams [Recovered/Resolved]
  - Stoma site discharge [Recovered/Resolved]
  - Dizziness [Unknown]
  - Stoma site discharge [Recovered/Resolved]
  - Stoma site pain [Recovered/Resolved]
  - Hallucination, visual [Not Recovered/Not Resolved]
  - Stoma site discharge [Not Recovered/Not Resolved]
  - Malaise [Not Recovered/Not Resolved]
  - On and off phenomenon [Not Recovered/Not Resolved]
  - Initial insomnia [Not Recovered/Not Resolved]
  - Syncope [Recovering/Resolving]
  - Stoma site pain [Recovered/Resolved]
  - Hallucination [Not Recovered/Not Resolved]
  - Fibroma [Not Recovered/Not Resolved]
  - Apathy [Not Recovered/Not Resolved]
  - Syncope [Recovered/Resolved]
  - Hypotension [Recovered/Resolved]
  - Bradykinesia [Not Recovered/Not Resolved]
  - Stoma site erythema [Not Recovered/Not Resolved]
  - Confusional state [Not Recovered/Not Resolved]
  - Malaise [Recovered/Resolved]
  - Fatigue [Recovered/Resolved]
  - Freezing phenomenon [Not Recovered/Not Resolved]

NARRATIVE: CASE EVENT DATE: 2017
